FAERS Safety Report 6403708-1 (Version None)
Quarter: 2009Q4

REPORT INFORMATION
  Report Type: 
  Country: None (occurrence: None)
  Receive Date: 20091016
  Receipt Date: 20091014
  Transmission Date: 20100525
  Serious: Yes (Death, Other)
  Sender: FDA-Public Use
  Company Number: DE-GENENTECH-292044

PATIENT
  Age: 63 Year
  Sex: Female

DRUGS (2)
  1. MABTHERA [Suspect]
     Indication: CENTRAL NERVOUS SYSTEM LYMPHOMA
     Dosage: 250 MG/M2, UNK
     Route: 065
  2. IBRITUMOMAB TIUXETAN [Suspect]
     Indication: CENTRAL NERVOUS SYSTEM LYMPHOMA
     Route: 065

REACTIONS (4)
  - LEUKOPENIA [None]
  - PNEUMONIA [None]
  - SEPSIS [None]
  - THROMBOCYTOPENIA [None]
